FAERS Safety Report 25468637 (Version 1)
Quarter: 2025Q2

REPORT INFORMATION
  Report Type: Spontaneous
  Country: GB (occurrence: GB)
  Receive Date: 20250623
  Receipt Date: 20250623
  Transmission Date: 20250717
  Serious: Yes (Congenital Anomaly, Other)
  Sender: PFIZER
  Company Number: None

PATIENT

DRUGS (7)
  1. LEVETIRACETAM [Suspect]
     Active Substance: LEVETIRACETAM
     Route: 064
  2. PHENYTOIN SODIUM [Suspect]
     Active Substance: PHENYTOIN SODIUM
     Route: 064
  3. CLOBAZAM [Suspect]
     Active Substance: CLOBAZAM
     Route: 064
  4. LACOSAMIDE [Suspect]
     Active Substance: LACOSAMIDE
     Route: 064
  5. LAMOTRIGINE [Suspect]
     Active Substance: LAMOTRIGINE
     Route: 064
  6. PHENOBARBITAL [Suspect]
     Active Substance: PHENOBARBITAL
     Route: 064
  7. ZONISAMIDE [Suspect]
     Active Substance: ZONISAMIDE
     Route: 064

REACTIONS (4)
  - Maternal exposure during pregnancy [Unknown]
  - Spina bifida [Unknown]
  - Cleft palate [Unknown]
  - Congenital aplasia [Unknown]
